FAERS Safety Report 21668351 (Version 1)
Quarter: 2022Q4

REPORT INFORMATION
  Report Type: Spontaneous
  Country: MY (occurrence: MY)
  Receive Date: 20221201
  Receipt Date: 20221201
  Transmission Date: 20230112
  Serious: Yes (Hospitalization)
  Sender: FDA-Public Use
  Company Number: MY-ARBOR PHARMACEUTICALS, LLC-MY-2022ARB002896

PATIENT
  Sex: Male

DRUGS (6)
  1. TRIPTODUR [Suspect]
     Active Substance: TRIPTORELIN
     Indication: Hormone-dependent prostate cancer
     Dosage: 1 DOSE EVERY 3-6 MONTHS (22.5 MG)
     Route: 030
     Dates: start: 20220728, end: 20221107
  2. TRIPTODUR [Suspect]
     Active Substance: TRIPTORELIN
  3. TRIPTODUR [Suspect]
     Active Substance: TRIPTORELIN
  4. BICALUTAMIDE [Concomitant]
     Active Substance: BICALUTAMIDE
     Indication: Product used for unknown indication
     Dosage: 50 MG ONCE DAILY (50 MG, 1D)
     Dates: start: 20220728, end: 20221107
  5. CALCIUM CARBONATE\CHOLECALCIFEROL [Concomitant]
     Active Substance: CALCIUM CARBONATE\CHOLECALCIFEROL
     Indication: Product used for unknown indication
     Dosage: 600 MG PLUS 500 INTERNATIONAL UNIT IU (1 DAY)
     Dates: start: 20220728, end: 20221107
  6. MEROPENEM [Concomitant]
     Active Substance: MEROPENEM
     Indication: Product used for unknown indication
     Dosage: 1 GM 3 TIMES DAILY (1 GM,8 HOUR)
     Dates: start: 20221103, end: 20221107

REACTIONS (3)
  - Pyrexia [Unknown]
  - Drug ineffective [Unknown]
  - Off label use [Unknown]

NARRATIVE: CASE EVENT DATE: 20220101
